FAERS Safety Report 11619076 (Version 2)
Quarter: 2015Q4

REPORT INFORMATION
  Report Type: Spontaneous
  Country: JP (occurrence: JP)
  Receive Date: 20151012
  Receipt Date: 20151208
  Transmission Date: 20160304
  Serious: Yes (Death, Hospitalization)
  Sender: FDA-Public Use
  Company Number: JP-BAYER-2015-434503

PATIENT
  Age: 73 Year
  Sex: Male
  Weight: 52.8 kg

DRUGS (1)
  1. NEXAVAR [Suspect]
     Active Substance: SORAFENIB
     Indication: HEPATOCELLULAR CARCINOMA
     Dosage: 400 MG, BID
     Route: 048
     Dates: start: 20150824, end: 20150908

REACTIONS (9)
  - Blood pressure decreased [Fatal]
  - Platelet count decreased [Fatal]
  - Malaise [Fatal]
  - Diarrhoea [Fatal]
  - Rash [Fatal]
  - Pyrexia [Fatal]
  - Decreased appetite [Fatal]
  - Pharyngeal erosion [Fatal]
  - Stevens-Johnson syndrome [Fatal]

NARRATIVE: CASE EVENT DATE: 20150908
